FAERS Safety Report 12983162 (Version 1)
Quarter: 2016Q4

REPORT INFORMATION
  Report Type: Spontaneous
  Country: US (occurrence: US)
  Receive Date: 20161129
  Receipt Date: 20161129
  Transmission Date: 20170207
  Serious: No
  Sender: FDA-Public Use
  Company Number: US-MALLINCKRODT-T201605115

PATIENT
  Sex: Female
  Weight: 68 kg

DRUGS (2)
  1. OXYMORPHONE [Concomitant]
     Active Substance: OXYMORPHONE
     Indication: BREAKTHROUGH PAIN
     Dosage: 5 MG, Q3H
  2. FENTANYL TRANSDERMAL SYSTEM [Suspect]
     Active Substance: FENTANYL
     Indication: PAIN
     Dosage: 12 MCG/HR, Q3D
     Route: 062
     Dates: start: 20160929

REACTIONS (4)
  - Product adhesion issue [Not Recovered/Not Resolved]
  - Drug ineffective [Not Recovered/Not Resolved]
  - Wrong technique in product usage process [Not Recovered/Not Resolved]
  - Application site irritation [Not Recovered/Not Resolved]

NARRATIVE: CASE EVENT DATE: 2016
